FAERS Safety Report 4527819-0 (Version None)
Quarter: 2004Q4

REPORT INFORMATION
  Report Type: 
  Country: None (occurrence: None)
  Receive Date: 20041215
  Receipt Date: 20041207
  Transmission Date: 20050328
  Serious: Yes (Hospitalization)
  Sender: FDA-Public Use
  Company Number: US-JNJFOC-20041202545

PATIENT
  Age: 22 Year
  Sex: Female

DRUGS (3)
  1. TOPAMAX [Suspect]
     Route: 049
  2. LAMICTAL [Concomitant]
  3. LAMICTAL [Concomitant]

REACTIONS (4)
  - BRAIN OPERATION [None]
  - COGNITIVE DISORDER [None]
  - CONVULSION [None]
  - SPEECH DISORDER [None]
